FAERS Safety Report 10236210 (Version 1)
Quarter: 2014Q1

REPORT INFORMATION
  Report Type: Spontaneous
  Country: US (occurrence: None)
  Receive Date: 20140306
  Receipt Date: 20140306
  Transmission Date: 20141002
  Serious: Yes (Other)
  Sender: FDA-Public Use
  Company Number: 163-21880-13103402

PATIENT
  Sex: Female

DRUGS (1)
  1. REVLIMID (LENALIDOMIDE) (10 CAPSULES) [Suspect]
     Indication: MYELODYSPLASTIC SYNDROME
     Route: 048
     Dates: start: 201106, end: 2011

REACTIONS (1)
  - Cerebrovascular accident [None]
